FAERS Safety Report 10076133 (Version 3)
Quarter: 2014Q4

REPORT INFORMATION
  Report Type: Spontaneous
  Country: US (occurrence: US)
  Receive Date: 20140414
  Receipt Date: 20141015
  Transmission Date: 20150528
  Serious: Yes (Hospitalization, Other)
  Sender: FDA-Public Use
  Company Number: US-BAYER-2014-054650

PATIENT
  Age: 23 Year
  Sex: Female
  Weight: 79 kg

DRUGS (4)
  1. MIRENA [Suspect]
     Active Substance: LEVONORGESTREL
     Indication: CONTRACEPTION
     Dosage: 20 MCG/24HR, CONT
     Route: 015
     Dates: start: 20110421, end: 201405
  2. MIRENA [Suspect]
     Active Substance: LEVONORGESTREL
     Indication: CONTRACEPTION
     Dosage: 20 MCG/24HR, CONT
     Route: 015
     Dates: start: 20110331, end: 20110421
  3. HYDROCODONE W/ACETAMINOPHEN [Concomitant]
     Active Substance: ACETAMINOPHEN\HYDROCODONE BITARTRATE
  4. IBUPROFEN. [Concomitant]
     Active Substance: IBUPROFEN

REACTIONS (11)
  - Depression [None]
  - Pelvic pain [None]
  - Device dislocation [None]
  - Emotional distress [None]
  - Uterine perforation [None]
  - Discomfort [None]
  - Fear [None]
  - Haemorrhage [None]
  - Abdominal pain [None]
  - Injury [None]
  - Anxiety [None]

NARRATIVE: CASE EVENT DATE: 201104
